FAERS Safety Report 21663469 (Version 1)
Quarter: 2022Q4

REPORT INFORMATION
  Report Type: Spontaneous
  Country: US (occurrence: None)
  Receive Date: 20221129
  Receipt Date: 20221129
  Transmission Date: 20230112
  Serious: No
  Sender: FDA-Public Use
  Company Number: None

PATIENT
  Age: 37 Year
  Sex: Female

DRUGS (1)
  1. HUMIRA [Suspect]
     Active Substance: ADALIMUMAB
     Indication: Hidradenitis
     Dosage: INJECT 80MG (1 PEN) SUBCUTANEOUSLY EVERY 2 WEEKS AS DIRECTED INJECT   ?
     Route: 058
     Dates: start: 202206

REACTIONS (1)
  - Meningitis [None]
